FAERS Safety Report 18861021 (Version 2)
Quarter: 2021Q1

REPORT INFORMATION
  Report Type: Report from Study
  Country: US (occurrence: US)
  Receive Date: 20210208
  Receipt Date: 20210318
  Transmission Date: 20210420
  Serious: No
  Sender: FDA-Public Use
  Company Number: NVSC2021US022520

PATIENT
  Age: 69 Year
  Sex: Male

DRUGS (1)
  1. TAFINLAR COMBO [Suspect]
     Active Substance: DABRAFENIB\TRAMETINIB
     Indication: MALIGNANT MELANOMA
     Dosage: 75 MG, QID
     Route: 048
     Dates: start: 202011

REACTIONS (3)
  - Asthenia [Unknown]
  - Pyrexia [Not Recovered/Not Resolved]
  - Vomiting [Not Recovered/Not Resolved]

NARRATIVE: CASE EVENT DATE: 202101
